FAERS Safety Report 19205780 (Version 1)
Quarter: 2021Q2

REPORT INFORMATION
  Report Type: Spontaneous
  Country: US (occurrence: US)
  Receive Date: 20210503
  Receipt Date: 20210503
  Transmission Date: 20210717
  Serious: No
  Sender: FDA-Public Use
  Company Number: US-FARMAPROD-202103-0300

PATIENT
  Sex: Male

DRUGS (12)
  1. BRIMONIDINE TARTRATE. [Concomitant]
     Active Substance: BRIMONIDINE TARTRATE
  2. ASPIRINE [Concomitant]
     Active Substance: ASPIRIN
  3. OXERVATE [Suspect]
     Active Substance: CENEGERMIN-BKBJ
     Indication: HYPOAESTHESIA EYE
  4. ATORVASTATIN CALCIUM. [Concomitant]
     Active Substance: ATORVASTATIN CALCIUM
  5. DORZOLAMIDE HYDROCHLORIDE. [Concomitant]
     Active Substance: DORZOLAMIDE HYDROCHLORIDE
  6. NOVOLOG [Concomitant]
     Active Substance: INSULIN ASPART
     Dosage: 100/ML VIAL
  7. CLOPIDOGREL [Concomitant]
     Active Substance: CLOPIDOGREL BISULFATE
  8. GABAPENTIN. [Concomitant]
     Active Substance: GABAPENTIN
  9. OXERVATE [Suspect]
     Active Substance: CENEGERMIN-BKBJ
     Indication: NEUROTROPHIC KERATOPATHY
     Route: 047
     Dates: start: 20210203
  10. LATANOPROST. [Concomitant]
     Active Substance: LATANOPROST
  11. LANTUS [Concomitant]
     Active Substance: INSULIN GLARGINE
     Dosage: 100/ML VIAL
  12. ISOMETHEPTENE MUCATE [Concomitant]
     Active Substance: ISOMETHEPTENE MUCATE

REACTIONS (2)
  - Discomfort [Unknown]
  - Ocular discomfort [Unknown]
